FAERS Safety Report 6755602-4 (Version None)
Quarter: 2010Q2

REPORT INFORMATION
  Report Type: 
  Country: None (occurrence: None)
  Receive Date: 20100604
  Receipt Date: 20100524
  Transmission Date: 20101027
  Serious: Yes (Hospitalization, Disabling)
  Sender: FDA-Public Use
  Company Number: PHHY2010US29282

PATIENT
  Sex: Female

DRUGS (5)
  1. RECLAST [Suspect]
     Dosage: GIVEN YEARLY
     Route: 042
     Dates: start: 20091102
  2. TORADOL [Interacting]
  3. PROTONIX [Concomitant]
  4. CARAFATE [Concomitant]
  5. OMEPRAZOLE [Concomitant]
     Indication: GASTRITIS EROSIVE
     Dosage: 20 MG, BID
     Route: 048

REACTIONS (6)
  - BURNING SENSATION [None]
  - DRUG INTERACTION [None]
  - GASTRITIS EROSIVE [None]
  - MALAISE [None]
  - PAIN [None]
  - WEIGHT DECREASED [None]
